FAERS Safety Report 18009146 (Version 1)
Quarter: 2020Q3

REPORT INFORMATION
  Report Type: Spontaneous
  Country: US (occurrence: US)
  Receive Date: 20200710
  Receipt Date: 20200710
  Transmission Date: 20201103
  Serious: No
  Sender: FDA-Public Use
  Company Number: US-SAOL THERAPEUTICS-2019SAO00377

PATIENT
  Age: 71 Year
  Sex: Female
  Weight: 71.2 kg

DRUGS (3)
  1. LIORESAL [Suspect]
     Active Substance: BACLOFEN
     Indication: SPINAL CORD INJURY
     Dosage: 96.2 ?G, \DAY
     Route: 037
     Dates: end: 20190909
  2. LIORESAL [Suspect]
     Active Substance: BACLOFEN
     Dosage: UNK
  3. LIORESAL [Suspect]
     Active Substance: BACLOFEN
     Indication: MUSCLE SPASTICITY
     Dosage: 96 ?G, \DAY
     Route: 037

REACTIONS (3)
  - Somnolence [Unknown]
  - Complication associated with device [Recovered/Resolved]
  - Overdose [Unknown]

NARRATIVE: CASE EVENT DATE: 20190909
